FAERS Safety Report 9681241 (Version 1)
Quarter: 2013Q4

REPORT INFORMATION
  Report Type: Spontaneous
  Country: US (occurrence: None)
  Receive Date: 20131108
  Receipt Date: 20131108
  Transmission Date: 20140711
  Serious: Yes (Other)
  Sender: FDA-Public Use
  Company Number: None

PATIENT
  Age: 68 Year
  Sex: Female
  Weight: 124.74 kg

DRUGS (1)
  1. METOPROLOL TARTRATE [Suspect]
     Indication: ATRIAL FIBRILLATION
     Route: 048

REACTIONS (7)
  - Poor quality sleep [None]
  - Dyspnoea [None]
  - Anxiety [None]
  - Abdominal distension [None]
  - Joint effusion [None]
  - Cough [None]
  - Urine output decreased [None]
